FAERS Safety Report 9182223 (Version 1)
Quarter: 2013Q1

REPORT INFORMATION
  Report Type: Spontaneous
  Country: US (occurrence: None)
  Receive Date: 20130321
  Receipt Date: 20130321
  Transmission Date: 20140127
  Serious: Yes (Life-Threatening, Hospitalization)
  Sender: FDA-Public Use
  Company Number: None

PATIENT
  Age: 69 Year
  Sex: Male
  Weight: 87.09 kg

DRUGS (1)
  1. CYMBALTA [Suspect]
     Indication: ANXIETY
     Dosage: 30 MG.  TOOK 1 PILL?DULOXETINE-HCI ONCE ONLY
     Dates: start: 20121212

REACTIONS (5)
  - Hypersensitivity [None]
  - Respiratory rate decreased [None]
  - Pharyngeal oedema [None]
  - Anaphylactic shock [None]
  - Apparent death [None]
